FAERS Safety Report 11937219 (Version 3)
Quarter: 2016Q1

REPORT INFORMATION
  Report Type: Spontaneous
  Country: US (occurrence: US)
  Receive Date: 20160121
  Receipt Date: 20160329
  Transmission Date: 20160526
  Serious: Yes (Disabling, Other)
  Sender: FDA-Public Use
  Company Number: US-REGENERON PHARMACEUTICALS, INC.-2016-10295

PATIENT

DRUGS (7)
  1. CHOLESTEROL [Concomitant]
     Active Substance: CHOLESTEROL
  2. WARFARIN [Concomitant]
     Active Substance: WARFARIN
  3. EYLEA [Suspect]
     Active Substance: AFLIBERCEPT
     Indication: NEOVASCULAR AGE-RELATED MACULAR DEGENERATION
     Dosage: 2 MG MILLIGRAM(S), RIGHT EYE, 0.05CC
     Route: 031
     Dates: start: 20131203
  4. EYLEA [Suspect]
     Active Substance: AFLIBERCEPT
     Dosage: 2 MG MILLIGRAM(S), LEFT EYE, AS NEEDED
     Route: 031
     Dates: start: 20140116
  5. EYLEA [Suspect]
     Active Substance: AFLIBERCEPT
     Dosage: 2 MG MILLIGRAM(S), RIGHT EYE, 0.05CC
     Route: 031
     Dates: start: 20160105, end: 20160105
  6. EYLEA [Suspect]
     Active Substance: AFLIBERCEPT
     Dosage: 2 MG MILLIGRAM(S), 0.05CC, LEFT EYE AS NEEDED
     Route: 031
     Dates: start: 20160105, end: 20160105
  7. THYROID [Concomitant]
     Active Substance: LEVOTHYROXINE\LIOTHYRONINE

REACTIONS (5)
  - Endophthalmitis [Recovered/Resolved]
  - Vitrectomy [Recovered/Resolved]
  - Intraocular pressure increased [Unknown]
  - Blindness unilateral [Unknown]
  - Blindness transient [Recovered/Resolved]

NARRATIVE: CASE EVENT DATE: 20160108
